FAERS Safety Report 14303658 (Version 2)
Quarter: 2018Q3

REPORT INFORMATION
  Report Type: Spontaneous
  Country: DE (occurrence: DE)
  Receive Date: 20171219
  Receipt Date: 20180724
  Transmission Date: 20181010
  Serious: Yes (Hospitalization, Other)
  Sender: FDA-Public Use
  Company Number: DE-OTSUKA-2016_002280

PATIENT
  Age: 41 Year
  Sex: Female
  Weight: 92 kg

DRUGS (5)
  1. VENLAFAXINE HCL [Suspect]
     Active Substance: VENLAFAXINE HYDROCHLORIDE
     Indication: DEPRESSION
     Dosage: 225 MG, QD
     Route: 048
     Dates: start: 201302
  2. ATOSIL [Suspect]
     Active Substance: PROMETHAZINE HYDROCHLORIDE
     Indication: SLEEP DISORDER
  3. ABILIFY [Suspect]
     Active Substance: ARIPIPRAZOLE
     Indication: DEPRESSION
     Dosage: 15 MG, QD
     Route: 048
     Dates: start: 201302
  4. ATOSIL [Suspect]
     Active Substance: PROMETHAZINE HYDROCHLORIDE
     Indication: ANXIETY
  5. ATOSIL [Suspect]
     Active Substance: PROMETHAZINE HYDROCHLORIDE
     Indication: RESTLESSNESS
     Dosage: 25 MG, PRN
     Route: 048
     Dates: start: 201302

REACTIONS (7)
  - Off label use [Unknown]
  - Cardiovascular disorder [Unknown]
  - Umbilical cord around neck [Unknown]
  - Maternal exposure during pregnancy [Unknown]
  - Dehydration [Unknown]
  - Haemorrhage [Unknown]
  - Live birth [Unknown]

NARRATIVE: CASE EVENT DATE: 20141106
